FAERS Safety Report 7593927-3 (Version None)
Quarter: 2011Q3

REPORT INFORMATION
  Report Type: 
  Country: None (occurrence: None)
  Receive Date: 20110706
  Receipt Date: 20110623
  Transmission Date: 20111222
  Serious: Yes (Hospitalization)
  Sender: FDA-Public Use
  Company Number: US-CELGENEUS-163-AB007-11060086

PATIENT
  Sex: Female
  Weight: 40.088 kg

DRUGS (32)
  1. LEVOTHYROXINE SODIUM [Concomitant]
     Dosage: 150 MICROGRAM
     Route: 065
  2. NEURONTIN [Concomitant]
     Dosage: 300 MILLIGRAM
     Route: 048
  3. MORPHINE SULFATE [Concomitant]
     Indication: PAIN
     Dosage: 15 MILLIGRAM
     Route: 065
  4. FLAGYL [Concomitant]
     Dosage: 500 MILLIGRAM
     Route: 048
  5. MIRALAX [Concomitant]
     Route: 065
  6. GEMCITABINE [Suspect]
     Dosage: 1000 MILLIGRAM/SQ. METER
     Route: 051
     Dates: start: 20110509, end: 20110523
  7. IMODIUM [Concomitant]
  8. OMEPRAZOLE [Concomitant]
     Route: 065
  9. CITALOPRAM HYDROBROMIDE [Concomitant]
     Route: 065
  10. CLARITIN [Concomitant]
     Dosage: 10 MILLIGRAM
     Route: 048
  11. SENOKOT [Concomitant]
     Route: 065
  12. GEMCITABINE [Suspect]
     Dosage: 1000 MILLIGRAM/SQ. METER
     Route: 051
     Dates: start: 20110606
  13. XANAX [Concomitant]
     Indication: ANXIETY
     Dosage: .5 MILLIGRAM
     Route: 048
  14. TYLENOL-500 [Concomitant]
     Dosage: 650 MILLIGRAM
     Route: 048
  15. ATIVAN [Concomitant]
     Dosage: 1 MILLIGRAM
     Route: 051
  16. COMPAZINE [Concomitant]
     Indication: NAUSEA
     Route: 065
  17. POTASSIUM CHLORIDE [Concomitant]
     Route: 065
  18. FLONASE [Concomitant]
     Dosage: 2 PUFFS
     Route: 045
  19. DILAUDID [Concomitant]
     Indication: PAIN
     Dosage: 4 MILLIGRAM
     Route: 048
  20. MS CONTIN [Concomitant]
     Indication: PAIN
     Dosage: 30 MILLIGRAM
     Route: 065
  21. COMPAZINE [Concomitant]
     Indication: VOMITING
     Dosage: 10 MILLIGRAM
     Route: 051
  22. LEVAQUIN [Concomitant]
     Dosage: 500 MILLIGRAM
     Route: 048
  23. PROTONIX [Concomitant]
     Dosage: 40 MILLIGRAM
     Route: 051
  24. TRAZODONE HCL [Concomitant]
     Route: 065
  25. TYLENOL-500 [Concomitant]
     Indication: HEADACHE
  26. MORPHINE SULFATE [Concomitant]
     Route: 051
  27. BENADRYL [Concomitant]
     Dosage: 50 MILLIGRAM
     Route: 048
  28. COLACE [Concomitant]
     Route: 065
  29. ABRAXANE [Suspect]
     Dosage: 125 MILLIGRAM/SQ. METER
     Route: 051
     Dates: start: 20110509, end: 20110523
  30. ABRAXANE [Suspect]
     Dosage: 125 MILLIGRAM/SQ. METER
     Route: 051
     Dates: start: 20110606
  31. CYMBALTA [Concomitant]
     Indication: DEPRESSION
     Dosage: 60 MILLIGRAM
     Route: 065
  32. CEPACOL [Concomitant]
     Route: 065

REACTIONS (1)
  - GASTROENTERITIS [None]
